FAERS Safety Report 18081039 (Version 1)
Quarter: 2020Q3

REPORT INFORMATION
  Report Type: Spontaneous
  Country: US (occurrence: US)
  Receive Date: 20200728
  Receipt Date: 20200728
  Transmission Date: 20201103
  Serious: No
  Sender: FDA-Public Use
  Company Number: US-BEH-2020120434

PATIENT
  Age: 54 Year
  Sex: Male

DRUGS (1)
  1. PRIVIGEN [Suspect]
     Active Substance: HUMAN IMMUNOGLOBULIN G
     Indication: IMMUNODEFICIENCY COMMON VARIABLE
     Dosage: 30 GRAM, EVERY 5?7 WEEKS
     Route: 042
     Dates: start: 20180627

REACTIONS (2)
  - Poor venous access [Not Recovered/Not Resolved]
  - Infusion site extravasation [Not Recovered/Not Resolved]
